FAERS Safety Report 6782064-3 (Version None)
Quarter: 2010Q2

REPORT INFORMATION
  Report Type: 
  Country: None (occurrence: None)
  Receive Date: 20100621
  Receipt Date: 20100610
  Transmission Date: 20101027
  Serious: Yes (Hospitalization)
  Sender: FDA-Public Use
  Company Number: B0659942A

PATIENT
  Age: 61 Year
  Sex: Female

DRUGS (3)
  1. ARIXTRA [Suspect]
     Indication: THROMBOSIS PROPHYLAXIS
     Dosage: 2.5MG PER DAY
     Route: 058
     Dates: start: 20081201, end: 20090126
  2. PREVISCAN [Suspect]
     Route: 048
     Dates: end: 20090126
  3. FLOLAN [Concomitant]
     Route: 042
     Dates: start: 20030601

REACTIONS (7)
  - BRAIN CONTUSION [None]
  - DEPRESSED LEVEL OF CONSCIOUSNESS [None]
  - HEADACHE [None]
  - HEMIANOPIA HOMONYMOUS [None]
  - MOTOR DYSFUNCTION [None]
  - SUBDURAL HAEMATOMA [None]
  - VOMITING [None]
